FAERS Safety Report 8926269 (Version 1)
Quarter: 2012Q4

REPORT INFORMATION
  Report Type: 
  Country: CA (occurrence: CA)
  Receive Date: 20121126
  Receipt Date: 20121126
  Transmission Date: 20130627
  Serious: Yes (Other)
  Sender: FDA-Public Use
  Company Number: CA-ASTRAZENECA-2012SE86218

PATIENT
  Sex: Male

DRUGS (2)
  1. SEROQUEL [Suspect]
     Route: 048
  2. ABILIFY [Suspect]
     Route: 048

REACTIONS (1)
  - Arrhythmia [Unknown]
